FAERS Safety Report 24179240 (Version 2)
Quarter: 2024Q3

REPORT INFORMATION
  Report Type: Spontaneous
  Country: US (occurrence: US)
  Receive Date: 20240806
  Receipt Date: 20240816
  Transmission Date: 20241016
  Serious: Yes (Death, Life-Threatening, Other)
  Sender: BAXTER
  Company Number: US-BAXTER-2024BAX022484

PATIENT
  Age: 78 Year
  Sex: Male

DRUGS (3)
  1. ZOSYN [Suspect]
     Active Substance: PIPERACILLIN SODIUM\TAZOBACTAM SODIUM
     Dosage: 3.375 G (FROZEN IV SOLUTION)
     Route: 042
     Dates: start: 20240721, end: 20240721
  2. EPINEPHRINE [Suspect]
     Active Substance: EPINEPHRINE
     Dosage: 0.3 MG AT 13:29
     Route: 065
     Dates: start: 20240721, end: 20240721
  3. EPINEPHRINE [Suspect]
     Active Substance: EPINEPHRINE
     Dosage: 0.3 MG AT 13:31
     Route: 065
     Dates: start: 20240721, end: 20240721

REACTIONS (8)
  - Death [Fatal]
  - Cardiac arrest [Unknown]
  - Heart rate decreased [None]
  - Acute respiratory distress syndrome [Unknown]
  - Oxygen saturation decreased [Unknown]
  - Hypopnoea [Unknown]
  - Pruritus [Unknown]
  - Erythema [Unknown]

NARRATIVE: CASE EVENT DATE: 20240721
